FAERS Safety Report 19650860 (Version 2)
Quarter: 2021Q3

REPORT INFORMATION
  Report Type: Spontaneous
  Country: US (occurrence: US)
  Receive Date: 20210803
  Receipt Date: 20210813
  Transmission Date: 20211014
  Serious: Yes (Hospitalization, Other)
  Sender: FDA-Public Use
  Company Number: US-CIPLA LTD.-2021US05184

PATIENT

DRUGS (5)
  1. COLCHICINE. [Suspect]
     Active Substance: COLCHICINE
     Indication: MYOCARDITIS
     Dosage: 0.6 MG DAILY
     Route: 065
  2. COLCHICINE. [Suspect]
     Active Substance: COLCHICINE
     Indication: PERICARDITIS
     Dosage: 90 PILLS (54 MG; 0.65 MG/KG).
     Route: 048
  3. COLCHICINE. [Suspect]
     Active Substance: COLCHICINE
     Indication: CHEST PAIN
  4. HYDROXYZINE [Suspect]
     Active Substance: HYDROXYZINE HYDROCHLORIDE
     Indication: ANXIETY
     Dosage: 25 MILLIGRAM, DAILY (VISTARIL)
     Route: 048
  5. COLCHICINE. [Suspect]
     Active Substance: COLCHICINE
     Indication: ABDOMINAL PAIN

REACTIONS (33)
  - Rhabdomyolysis [Unknown]
  - Neutropenia [Unknown]
  - Left ventricular dysfunction [Unknown]
  - Skin exfoliation [Unknown]
  - Leukocytosis [Unknown]
  - Troponin I increased [Unknown]
  - Oliguria [Unknown]
  - Disseminated intravascular coagulation [Unknown]
  - Mental status changes [Unknown]
  - Multiple organ dysfunction syndrome [Unknown]
  - Hyperkalaemia [Unknown]
  - Blood lactic acid increased [Unknown]
  - Blister [Unknown]
  - Livedo reticularis [Unknown]
  - Candida infection [Unknown]
  - Hyperphosphataemia [Unknown]
  - Generalised oedema [Unknown]
  - Tachypnoea [Unknown]
  - Toxicity to various agents [Unknown]
  - Respiratory rate increased [Unknown]
  - Acute kidney injury [Unknown]
  - Acute hepatic failure [Unknown]
  - Hypoglycaemia [Unknown]
  - Mouth haemorrhage [Unknown]
  - Shock [Unknown]
  - Hypotension [Unknown]
  - Acidosis [Unknown]
  - Hepatic function abnormal [Unknown]
  - Lipase increased [Unknown]
  - Hypocalcaemia [Unknown]
  - Hypomagnesaemia [Unknown]
  - Pancytopenia [Unknown]
  - Self-medication [Unknown]
